FAERS Safety Report 7010554-7 (Version None)
Quarter: 2010Q3

REPORT INFORMATION
  Report Type: 
  Country: None (occurrence: None)
  Receive Date: 20100909
  Receipt Date: 20100514
  Transmission Date: 20110219
  Serious: No
  Sender: FDA-Public Use
  Company Number: 2010SP027246

PATIENT
  Sex: Female

DRUGS (5)
  1. SAPHRIS [Suspect]
     Indication: ANXIETY
     Dosage: 5 MG;BID;SL
     Dates: start: 20100512, end: 20100512
  2. SAPHRIS [Suspect]
     Indication: DEPRESSION
     Dosage: 5 MG;BID;SL
     Dates: start: 20100512, end: 20100512
  3. LITHIUM (CON.) [Concomitant]
  4. MOBAN (CON.) [Concomitant]
  5. XANAX (CON.) [Concomitant]

REACTIONS (1)
  - SEDATION [None]
